FAERS Safety Report 4993628-1 (Version None)
Quarter: 2006Q2

REPORT INFORMATION
  Report Type: 
  Country: None (occurrence: None)
  Receive Date: 20060505
  Receipt Date: 20060427
  Transmission Date: 20061013
  Serious: Yes (Congenital Anomaly)
  Sender: FDA-Public Use
  Company Number: 2006SE02433

PATIENT
  Age: 405 Month
  Sex: Female
  Weight: 107 kg

DRUGS (2)
  1. ATACAND [Suspect]
     Indication: MIGRAINE
     Route: 048
     Dates: end: 20050101
  2. ZOMIG [Suspect]
     Indication: MIGRAINE
     Route: 048
     Dates: end: 20050101

REACTIONS (7)
  - ABORTION INDUCED [None]
  - AMNIOTIC CAVITY DISORDER [None]
  - AMNIOTIC FLUID VOLUME DECREASED [None]
  - CONGENITAL ANOMALY [None]
  - FOETAL DISORDER [None]
  - FOETAL MALFORMATION [None]
  - RENAL TUBULAR ATROPHY [None]
